FAERS Safety Report 4950932-0 (Version None)
Quarter: 2006Q1

REPORT INFORMATION
  Report Type: 
  Country: None (occurrence: None)
  Receive Date: 20060322
  Receipt Date: 20060316
  Transmission Date: 20060701
  Serious: Yes (Hospitalization)
  Sender: FDA-Public Use
  Company Number: CO-BOEHRINGER INGELHEIM PHARMACEUTICALS, INC.-2006-BP-02994CL

PATIENT
  Sex: Female
  Weight: 60 kg

DRUGS (3)
  1. MICARDIS [Suspect]
     Indication: HYPERTENSION
     Route: 048
     Dates: start: 20060201
  2. CAPTOPRIL [Concomitant]
     Indication: HYPERTENSION
     Route: 048
     Dates: start: 19960101
  3. GLIBENCLAMIDA (GLIBENCLAMIDE) [Concomitant]
     Indication: DIABETES MELLITUS
     Route: 048
     Dates: start: 19960101

REACTIONS (1)
  - ANGINA PECTORIS [None]
